FAERS Safety Report 5906740-7 (Version None)
Quarter: 2008Q3

REPORT INFORMATION
  Report Type: 
  Country: None (occurrence: None)
  Receive Date: 20080930
  Receipt Date: 20080918
  Transmission Date: 20090109
  Serious: Yes (Death, Other)
  Sender: FDA-Public Use
  Company Number: SPV1-2008-02002

PATIENT
  Age: 76 Year
  Sex: Male
  Weight: 77 kg

DRUGS (5)
  1. ANAGRELIDE HYDROCHLORIDE [Suspect]
     Indication: ESSENTIAL THROMBOCYTHAEMIA
     Dosage: 1 MG, 2X/DAY:BID,
     Dates: start: 20070601, end: 20080818
  2. HYDROXYUREA [Concomitant]
  3. ACETYLCYSTEINE [Concomitant]
  4. TENORETIC 100 [Concomitant]
  5. IRBESARTAN [Concomitant]

REACTIONS (4)
  - ATRIAL FIBRILLATION [None]
  - CARDIAC ARREST [None]
  - CARDIAC FAILURE [None]
  - WHITE BLOOD CELL COUNT INCREASED [None]
